FAERS Safety Report 25924532 (Version 1)
Quarter: 2025Q4

REPORT INFORMATION
  Report Type: Spontaneous
  Country: EU (occurrence: EU)
  Receive Date: 20251015
  Receipt Date: 20251015
  Transmission Date: 20260118
  Serious: Yes (Other)
  Sender: MERCK SHARP & DOHME LLC
  Company Number: EU-009507513-2339787

PATIENT
  Age: 38 Year
  Sex: Female

DRUGS (1)
  1. PEMBROLIZUMAB [Suspect]
     Active Substance: PEMBROLIZUMAB
     Indication: Triple negative breast cancer

REACTIONS (7)
  - Hepatotoxicity [Recovering/Resolving]
  - Polyneuropathy [Recovering/Resolving]
  - Anaemia [Recovering/Resolving]
  - Hot flush [Recovering/Resolving]
  - Mucosal inflammation [Recovering/Resolving]
  - Fatigue [Recovering/Resolving]
  - Neutropenia [Recovering/Resolving]
